FAERS Safety Report 6527804-3 (Version None)
Quarter: 2010Q1

REPORT INFORMATION
  Report Type: 
  Country: None (occurrence: None)
  Receive Date: 20100106
  Receipt Date: 20100104
  Transmission Date: 20100710
  Serious: Yes (Life-Threatening)
  Sender: FDA-Public Use
  Company Number: FR-ROCHE-610267

PATIENT
  Sex: Male

DRUGS (10)
  1. ROCEPHIN [Suspect]
     Route: 042
     Dates: start: 20081119, end: 20081125
  2. TRIFLUCAN [Suspect]
     Route: 042
     Dates: start: 20081119, end: 20081125
  3. TAVANIC [Suspect]
     Route: 042
     Dates: start: 20081119, end: 20081125
  4. PENTACARINAT [Suspect]
     Route: 042
     Dates: start: 20081120, end: 20081120
  5. CYMEVAN [Concomitant]
     Dates: start: 20081125
  6. ARIXTRA [Concomitant]
     Indication: PHLEBITIS
     Route: 058
  7. KALETRA [Concomitant]
     Indication: ANTIRETROVIRAL THERAPY
     Route: 048
  8. EPIVIR [Concomitant]
     Indication: ANTIRETROVIRAL THERAPY
     Route: 048
  9. VIDEX [Concomitant]
     Route: 048
  10. PENTACARINAT [Concomitant]
     Dates: start: 20081014

REACTIONS (5)
  - HYPOTHERMIA [None]
  - OROPHARYNGEAL CANDIDIASIS [None]
  - SEPTIC SHOCK [None]
  - TACHYCARDIA [None]
  - TOOTH DISCOLOURATION [None]
